FAERS Safety Report 10727216 (Version 4)
Quarter: 2015Q2

REPORT INFORMATION
  Report Type: Spontaneous
  Country: US (occurrence: US)
  Receive Date: 20150121
  Receipt Date: 20150614
  Transmission Date: 20150821
  Serious: Yes (Hospitalization, Other)
  Sender: FDA-Public Use
  Company Number: US-009507513-1104USA00900

PATIENT
  Sex: Female

DRUGS (3)
  1. ALENDRONATE SODIUM. [Suspect]
     Active Substance: ALENDRONATE SODIUM
     Dosage: 70 MG, UNK
     Dates: start: 20111004, end: 20120627
  2. FOSAMAX [Suspect]
     Active Substance: ALENDRONATE SODIUM
     Indication: BONE DENSITY DECREASED
     Dosage: 70 MG, UNK
     Route: 048
     Dates: start: 2001, end: 20050731
  3. FOSAMAX PLUS D [Suspect]
     Active Substance: ALENDRONATE SODIUM\CHOLECALCIFEROL
     Indication: BONE DENSITY DECREASED
     Dosage: 70 MG/2800 IU, UNK
     Route: 048
     Dates: start: 2005, end: 2008

REACTIONS (27)
  - Femur fracture [Unknown]
  - Fracture nonunion [Unknown]
  - Open reduction of fracture [Unknown]
  - Device breakage [Unknown]
  - Osteopenia [Unknown]
  - Aortic aneurysm [Unknown]
  - Visual impairment [Unknown]
  - Intramedullary rod insertion [Unknown]
  - Gastritis [Unknown]
  - Gastrooesophageal reflux disease [Unknown]
  - Aneurysm [Unknown]
  - Arrhythmia [Unknown]
  - Constipation [Unknown]
  - Intramedullary rod insertion [Unknown]
  - Femur fracture [Recovered/Resolved]
  - Aortic dissection [Unknown]
  - Hypercholesterolaemia [Unknown]
  - Bursitis [Unknown]
  - Night sweats [Unknown]
  - Headache [Unknown]
  - Post procedural haematoma [Unknown]
  - Bone graft [Unknown]
  - Asthenia [Unknown]
  - Femur fracture [Recovered/Resolved]
  - Aneurysm repair [Unknown]
  - Hypertension [Unknown]
  - Oesophageal achalasia [Unknown]

NARRATIVE: CASE EVENT DATE: 20060823
